FAERS Safety Report 8257322-6 (Version None)
Quarter: 2012Q1

REPORT INFORMATION
  Report Type: 
  Country: None (occurrence: None)
  Receive Date: 20120330
  Receipt Date: 20120320
  Transmission Date: 20120608
  Serious: Yes (Other)
  Sender: FDA-Public Use
  Company Number: IMP_05803_2012

PATIENT
  Age: 30 Year
  Sex: Male

DRUGS (1)
  1. CABERGOLINE [Suspect]
     Indication: PROLACTINOMA
     Dosage: (3 MG 1X/WEEK), (0.5 MG 1X/WEEK)

REACTIONS (3)
  - VISUAL FIELD DEFECT [None]
  - CONDITION AGGRAVATED [None]
  - VISUAL PATHWAY DISORDER [None]
